FAERS Safety Report 17372716 (Version 1)
Quarter: 2020Q1

REPORT INFORMATION
  Report Type: Spontaneous
  Country: JP (occurrence: JP)
  Receive Date: 20200205
  Receipt Date: 20200205
  Transmission Date: 20200409
  Serious: Yes (Other)
  Sender: FDA-Public Use
  Company Number: JP-PFIZER INC-2019548746

PATIENT
  Age: 41 Year
  Sex: Male

DRUGS (4)
  1. LYRICA [Suspect]
     Active Substance: PREGABALIN
     Indication: SCIATICA
     Dosage: 125, DAILY
     Route: 048
     Dates: start: 20190801, end: 20190829
  2. NEUROTROPIN [RABBIT VACCINIA EXTRACT] [Suspect]
     Active Substance: ORYCTOLAGUS CUNICULUS SKIN
  3. LYRICA [Suspect]
     Active Substance: PREGABALIN
     Dosage: 150 MG, DAILY
     Route: 048
     Dates: start: 20190830, end: 20191210
  4. CELECOX [Suspect]
     Active Substance: CELECOXIB
     Route: 048

REACTIONS (12)
  - Skin indentation [Not Recovered/Not Resolved]
  - Temporomandibular joint syndrome [Unknown]
  - Muscle atrophy [Unknown]
  - Tetanus [Unknown]
  - Ureterolithiasis [Unknown]
  - Fatigue [Unknown]
  - Muscle rigidity [Unknown]
  - Weight decreased [Unknown]
  - Malaise [Unknown]
  - Musculoskeletal stiffness [Not Recovered/Not Resolved]
  - Blood creatine phosphokinase increased [Not Recovered/Not Resolved]
  - Pain [Unknown]

NARRATIVE: CASE EVENT DATE: 2019
